FAERS Safety Report 9387361 (Version 1)
Quarter: 2013Q3

REPORT INFORMATION
  Report Type: Spontaneous
  Country: US (occurrence: None)
  Receive Date: 20130703
  Receipt Date: 20130703
  Transmission Date: 20140515
  Serious: No
  Sender: FDA-Public Use
  Company Number: None

PATIENT
  Age: 79 Year
  Sex: Female

DRUGS (1)
  1. PROLIA 60 MG SQ EVERY 6 MONTHS AMGEN [Suspect]
     Indication: OSTEOPOROSIS
     Dosage: 60 MG EVERY 6 MTHS
     Dates: start: 20130312

REACTIONS (6)
  - Vision blurred [None]
  - Joint swelling [None]
  - Hypoaesthesia [None]
  - Alopecia [None]
  - Pain in extremity [None]
  - Musculoskeletal pain [None]
